FAERS Safety Report 4804385-3 (Version None)
Quarter: 2005Q4

REPORT INFORMATION
  Report Type: 
  Country: None (occurrence: None)
  Receive Date: 20051018
  Receipt Date: 20051018
  Transmission Date: 20060501
  Serious: Yes (Death, Hospitalization)
  Sender: FDA-Public Use
  Company Number: None

PATIENT
  Sex: Male
  Weight: 117 kg

DRUGS (5)
  1. CYCLOPHOSPHAMIDE [Suspect]
     Indication: B-CELL LYMPHOMA
     Dosage: SEE IMAGE
     Dates: start: 20050923, end: 20050923
  2. DOXORUBICIN HYDROCHLORIDE [Suspect]
     Dosage: SEE IMAGE
     Dates: start: 20050923, end: 20050923
  3. PREDNISONE TAB [Suspect]
     Dosage: SEE IMAGE
     Dates: start: 20050923, end: 20050927
  4. RITUXIMAB [Suspect]
     Dosage: SEE IMAGE
     Dates: start: 20050923
  5. VINCRISTINE SULFATE [Suspect]
     Dosage: SEE IMAGE
     Dates: start: 20050923, end: 20050923

REACTIONS (1)
  - DEATH [None]
